FAERS Safety Report 17368136 (Version 2)
Quarter: 2021Q4

REPORT INFORMATION
  Report Type: Report from Study
  Country: AT (occurrence: None)
  Receive Date: 20200204
  Receipt Date: 20211126
  Transmission Date: 20220303
  Serious: Yes (Hospitalization)
  Sender: FDA-Public Use
  Company Number: 2019SE59448

PATIENT
  Age: 70 Year
  Sex: Female
  Weight: 81 kg

DRUGS (3)
  1. DURVALUMAB [Suspect]
     Active Substance: DURVALUMAB
     Indication: Non-small cell lung cancer metastatic
     Route: 042
     Dates: start: 20190319, end: 20190319
  2. CERALASERTIB [Suspect]
     Active Substance: CERALASERTIB
     Indication: Non-small cell lung cancer metastatic
     Route: 048
     Dates: start: 20190312, end: 20190318
  3. PIPERACILLIN SODIUM\TAZOBACTAM SODIUM [Concomitant]
     Active Substance: PIPERACILLIN SODIUM\TAZOBACTAM SODIUM
     Indication: Pneumonia
     Route: 042
     Dates: start: 20190403, end: 20190415

REACTIONS (1)
  - Chills [Recovered/Resolved]

NARRATIVE: CASE EVENT DATE: 20190416
